FAERS Safety Report 17190000 (Version 1)
Quarter: 2019Q4

REPORT INFORMATION
  Report Type: Report from Study
  Country: US (occurrence: US)
  Receive Date: 20191223
  Receipt Date: 20191223
  Transmission Date: 20200122
  Serious: Yes (Other)
  Sender: FDA-Public Use
  Company Number: US-NOVOPROD-702715

PATIENT
  Age: 29 Year
  Sex: Male

DRUGS (1)
  1. NORDITROPIN [Suspect]
     Active Substance: SOMATROPIN
     Indication: HYPOPITUITARISM
     Dosage: UNK
     Route: 058
     Dates: start: 19890101, end: 20170101

REACTIONS (4)
  - Suicidal ideation [Not Recovered/Not Resolved]
  - Product dose omission [Not Recovered/Not Resolved]
  - Depression [Not Recovered/Not Resolved]
  - Tic [Not Recovered/Not Resolved]

NARRATIVE: CASE EVENT DATE: 20170101
